FAERS Safety Report 17633400 (Version 2)
Quarter: 2020Q3

REPORT INFORMATION
  Report Type: Report from Study
  Country: MX (occurrence: MX)
  Receive Date: 20200406
  Receipt Date: 20200409
  Transmission Date: 20201104
  Serious: Yes (Hospitalization)
  Sender: FDA-Public Use
  Company Number: MX-CELGENEUS-MEX-20200307600

PATIENT
  Age: 38 Year
  Sex: Male
  Weight: 110 kg

DRUGS (6)
  1. MESALAZINE [Concomitant]
     Active Substance: MESALAMINE
     Indication: CROHN^S DISEASE
     Dosage: 1500 MILLIGRAM
     Route: 048
     Dates: start: 201307
  2. IBUPROFEN. [Concomitant]
     Active Substance: IBUPROFEN
     Indication: ARTHRALGIA
     Route: 048
     Dates: start: 20200214, end: 20200216
  3. ATENOLOL. [Concomitant]
     Active Substance: ATENOLOL
     Indication: CEREBROVASCULAR ACCIDENT
     Dosage: 25 MILLIGRAM
     Route: 048
     Dates: start: 2013
  4. OZANIMOD. [Suspect]
     Active Substance: OZANIMOD
     Indication: CROHN^S DISEASE
     Dosage: 0.92 MILLIGRAMS
     Route: 048
     Dates: start: 20200217, end: 20200303
  5. ATENOLOL. [Concomitant]
     Active Substance: ATENOLOL
     Indication: HYPERTENSION
  6. PREDNISONE. [Concomitant]
     Active Substance: PREDNISONE
     Indication: CROHN^S DISEASE
     Dosage: 20 MILLIGRAM
     Route: 048
     Dates: start: 201307

REACTIONS (1)
  - Gastritis erosive [Recovered/Resolved]

NARRATIVE: CASE EVENT DATE: 20200304
